FAERS Safety Report 8857124 (Version 1)
Quarter: 2012Q4

REPORT INFORMATION
  Report Type: 
  Country: US (occurrence: US)
  Receive Date: 20121023
  Receipt Date: 20121023
  Transmission Date: 20130627
  Serious: No
  Sender: FDA-Public Use
  Company Number: US-AMGEN-USASP2012055184

PATIENT
  Sex: Female

DRUGS (15)
  1. ENBREL [Suspect]
     Indication: PRODUCT USED FOR UNKNOWN INDICATION
     Dosage: 50 mg, qwk
     Route: 058
  2. SOMA [Concomitant]
     Dosage: 250 mg, UNK
  3. PREDNISONE [Concomitant]
     Dosage: 10 mg, UNK
  4. TRAMADOL HCL [Concomitant]
     Dosage: 50 mg, UNK
  5. LEVOTHYROXIN [Concomitant]
     Dosage: 100 mug, UNK
  6. AMITRIPTYLIN [Concomitant]
     Dosage: 100 mg, UNK
  7. TRIFLUOPERAZINE [Concomitant]
     Dosage: 10 mg, UNK
  8. NITROGLYCERIN [Concomitant]
     Dosage: 2.5 mg, UNK
  9. ASPIRIN BUFFERED [Concomitant]
     Dosage: 325 mg, UNK
  10. FISH OIL [Concomitant]
     Dosage: UNK
  11. CALCIUM [Concomitant]
     Dosage: 500 UNK, UNK
  12. VITAMIN B [Concomitant]
     Dosage: 50 UNK, UNK
  13. ETODOLAC [Concomitant]
     Dosage: 200 mg, UNK
  14. VITAMIN A /00056001/ [Concomitant]
     Dosage: UNK
  15. MAGNESIUM                          /00082501/ [Concomitant]
     Dosage: 300 mg, UNK

REACTIONS (2)
  - Sinus headache [Unknown]
  - Sneezing [Unknown]
